FAERS Safety Report 17497363 (Version 2)
Quarter: 2020Q2

REPORT INFORMATION
  Report Type: Report from Study
  Country: IT (occurrence: IT)
  Receive Date: 20200304
  Receipt Date: 20200507
  Transmission Date: 20200713
  Serious: Yes (Hospitalization)
  Sender: FDA-Public Use
  Company Number: IT-MYLANLABS-2020M1022484

PATIENT
  Age: 4 Year
  Sex: Female
  Weight: 13 kg

DRUGS (1)
  1. CLARITHROMYCIN. [Suspect]
     Active Substance: CLARITHROMYCIN
     Indication: BRONCHITIS
     Dosage: 600 MILLIGRAM, QD
     Route: 048
     Dates: start: 20200116, end: 20200118

REACTIONS (3)
  - Overdose [Unknown]
  - Medication error [Unknown]
  - Asthenia [Unknown]

NARRATIVE: CASE EVENT DATE: 20200118
